FAERS Safety Report 7500782-6 (Version None)
Quarter: 2011Q2

REPORT INFORMATION
  Report Type: 
  Country: None (occurrence: None)
  Receive Date: 20110524
  Receipt Date: 20110512
  Transmission Date: 20111010
  Serious: Yes (Hospitalization, Other)
  Sender: FDA-Public Use
  Company Number: US-ASTRAZENECA-2010SE42854

PATIENT
  Age: 77 Year
  Sex: Female
  Weight: 72.6 kg

DRUGS (11)
  1. TRIAMTERENE [Concomitant]
  2. METOPROLOL TARTRATE [Concomitant]
  3. CALCIUM+D [Concomitant]
  4. LEVOTHYROXINE SODIUM [Concomitant]
  5. BENICAR [Concomitant]
  6. IBUPROFEN [Concomitant]
  7. SYMBICORT [Suspect]
     Indication: ASTHMA
     Dosage: 160/4.5, 2 PUFFS BID
     Route: 055
  8. COMBIVENT [Concomitant]
  9. SERTRALINE HYDROCHLORIDE [Concomitant]
  10. CLONAZEPAM [Concomitant]
  11. ALBUTEROL [Concomitant]

REACTIONS (7)
  - OEDEMA PERIPHERAL [None]
  - LIMB OPERATION [None]
  - RENAL CANCER [None]
  - NEPHRECTOMY [None]
  - NEOPLASM MALIGNANT [None]
  - BACTERIAL INFECTION [None]
  - BLOOD SODIUM INCREASED [None]
